FAERS Safety Report 7035788-7 (Version None)
Quarter: 2010Q4

REPORT INFORMATION
  Report Type: 
  Country: None (occurrence: None)
  Receive Date: 20101007
  Receipt Date: 20101007
  Transmission Date: 20110411
  Serious: No
  Sender: FDA-Public Use
  Company Number: None

PATIENT
  Age: 54 Year
  Sex: Female
  Weight: 86.1834 kg

DRUGS (1)
  1. ATRIPLA [Suspect]
     Indication: IMMUNODEFICIENCY
     Dosage: 1 TAB PO HS HS PO
     Route: 048
     Dates: start: 20100401, end: 20100530

REACTIONS (4)
  - ANOSMIA [None]
  - BURNING SENSATION [None]
  - HYPOGEUSIA [None]
  - NEUROPATHY PERIPHERAL [None]
